FAERS Safety Report 5497591-9 (Version None)
Quarter: 2007Q4

REPORT INFORMATION
  Report Type: 
  Country: None (occurrence: None)
  Receive Date: 20071025
  Receipt Date: 20070111
  Transmission Date: 20080405
  Serious: No
  Sender: FDA-Public Use
  Company Number: A0631450A

PATIENT
  Age: 43 Year
  Sex: Male

DRUGS (5)
  1. ADVAIR DISKUS 100/50 [Suspect]
     Indication: MULTIPLE ALLERGIES
     Dosage: 1PUFF TWICE PER DAY
     Route: 055
     Dates: start: 20061205, end: 20061213
  2. SINGULAIR [Concomitant]
     Indication: SINUS DISORDER
     Dosage: 10MG PER DAY
  3. PREDNISONE [Concomitant]
  4. IMURAN [Concomitant]
  5. PROTONIX [Concomitant]

REACTIONS (2)
  - APHONIA [None]
  - DYSPHONIA [None]
